FAERS Safety Report 14665110 (Version 1)
Quarter: 2018Q1

REPORT INFORMATION
  Report Type: Spontaneous
  Country: US (occurrence: US)
  Receive Date: 20180320
  Receipt Date: 20180320
  Transmission Date: 20180509
  Serious: Yes (Life-Threatening, Hospitalization)
  Sender: FDA-Public Use
  Company Number: None

PATIENT
  Age: 48 Year
  Sex: Female
  Weight: 63.9 kg

DRUGS (17)
  1. TORADOL [Concomitant]
     Active Substance: KETOROLAC TROMETHAMINE
  2. TIZANIDINE. [Concomitant]
     Active Substance: TIZANIDINE
  3. RITUXAN [Suspect]
     Active Substance: RITUXIMAB
     Indication: ARTHRITIS
     Dosage: MEDI-PORT?
     Dates: start: 20180316, end: 20180316
  4. CYTOMEL [Concomitant]
     Active Substance: LIOTHYRONINE SODIUM
  5. PHENTERMINE. [Concomitant]
     Active Substance: PHENTERMINE
  6. TOPAMAX [Concomitant]
     Active Substance: TOPIRAMATE
  7. PLAQUENIL [Concomitant]
     Active Substance: HYDROXYCHLOROQUINE SULFATE
  8. CELEBREX [Concomitant]
     Active Substance: CELECOXIB
  9. IVIG [Concomitant]
     Active Substance: HUMAN IMMUNOGLOBULIN G
  10. PENNSAID [Concomitant]
     Active Substance: DICLOFENAC SODIUM
  11. SYNTHROID [Concomitant]
     Active Substance: LEVOTHYROXINE SODIUM
  12. BIOTIN [Concomitant]
     Active Substance: BIOTIN
  13. SELENIUM [Concomitant]
     Active Substance: SELENIUM
  14. ZOFRAN [Concomitant]
     Active Substance: ONDANSETRON HYDROCHLORIDE
  15. VITAMIN D3 [Concomitant]
     Active Substance: CHOLECALCIFEROL
  16. OMEGA-3 ACIDS [Concomitant]
     Active Substance: OMEGA-3 FATTY ACIDS
  17. PROGESTERONE. [Concomitant]
     Active Substance: PROGESTERONE

REACTIONS (10)
  - Paralysis [None]
  - Gait disturbance [None]
  - Myalgia [None]
  - Asthenia [None]
  - Arthralgia [None]
  - Thinking abnormal [None]
  - Muscle spasms [None]
  - Oral disorder [None]
  - Hypersensitivity [None]
  - Dizziness [None]

NARRATIVE: CASE EVENT DATE: 20180316
